FAERS Safety Report 5070770-0 (Version None)
Quarter: 2006Q3

REPORT INFORMATION
  Report Type: 
  Country: None (occurrence: None)
  Receive Date: 20060804
  Receipt Date: 20010503
  Transmission Date: 20061208
  Serious: Yes (Hospitalization, Other)
  Sender: FDA-Public Use
  Company Number: DE-BAYER-200110830BVD

PATIENT
  Age: 43 Year
  Sex: Female
  Weight: 52 kg

DRUGS (2)
  1. AVELOX [Suspect]
     Indication: BRONCHITIS
     Route: 048
     Dates: start: 20001222, end: 20001229
  2. APIS MELLIFICA (HYMENOPTERA) [Concomitant]

REACTIONS (15)
  - ASCITES [None]
  - BRADYCARDIA [None]
  - CHEST PAIN [None]
  - DYSPNOEA [None]
  - HYPERSENSITIVITY [None]
  - HYPOTENSION [None]
  - OEDEMA PERIPHERAL [None]
  - PARTIAL SEIZURES [None]
  - PERICARDIAL EFFUSION [None]
  - PLEURAL EFFUSION [None]
  - POLYSEROSITIS [None]
  - PRURITUS [None]
  - RASH [None]
  - SYNCOPE [None]
  - URTICARIA [None]
